FAERS Safety Report 7272137-3 (Version None)
Quarter: 2011Q1

REPORT INFORMATION
  Report Type: 
  Country: None (occurrence: None)
  Receive Date: 20110203
  Receipt Date: 20110126
  Transmission Date: 20110831
  Serious: Yes (Death)
  Sender: FDA-Public Use
  Company Number: DE-BAXTER-2011BH000009

PATIENT
  Age: 41 Year
  Sex: Female

DRUGS (8)
  1. PHYSIOSOL IN PLASTIC CONTAINER [Suspect]
     Indication: RENAL FAILURE CHRONIC
     Route: 033
     Dates: end: 20110102
  2. CALCIUM ACETATE [Concomitant]
     Indication: HYPERPARATHYROIDISM SECONDARY
     Route: 048
  3. EXTRANEAL [Suspect]
     Indication: PERITONEAL DIALYSIS
     Route: 033
     Dates: end: 20110102
  4. EPOGEN [Concomitant]
     Indication: NEPHROGENIC ANAEMIA
     Route: 058
  5. FUROSEMIDE [Concomitant]
     Indication: RENAL FAILURE
     Route: 048
  6. MARCUMAR [Concomitant]
     Indication: ATRIAL FIBRILLATION
     Route: 048
  7. EXTRANEAL [Suspect]
     Indication: RENAL FAILURE CHRONIC
     Route: 033
     Dates: end: 20110102
  8. PHYSIOSOL IN PLASTIC CONTAINER [Suspect]
     Indication: PERITONEAL DIALYSIS
     Route: 033
     Dates: end: 20110102

REACTIONS (3)
  - MULTI-ORGAN FAILURE [None]
  - SEPSIS [None]
  - PNEUMONIA [None]
